FAERS Safety Report 20471922 (Version 2)
Quarter: 2022Q1

REPORT INFORMATION
  Report Type: Spontaneous
  Country: PT (occurrence: PT)
  Receive Date: 20220214
  Receipt Date: 20220216
  Transmission Date: 20220423
  Serious: Yes (Hospitalization, Other)
  Sender: FDA-Public Use
  Company Number: PT-ALLERGAN-2204837US

PATIENT
  Sex: Female

DRUGS (3)
  1. URSODIOL [Suspect]
     Active Substance: URSODIOL
     Indication: Primary biliary cholangitis
     Dosage: 500 MG, BID
  2. URSODIOL [Suspect]
     Active Substance: URSODIOL
     Dosage: 250 MG, BID
  3. DEXAMETHASONE [Concomitant]
     Active Substance: DEXAMETHASONE
     Indication: Lung disorder

REACTIONS (3)
  - Haemorrhage in pregnancy [Unknown]
  - Pregnancy [Unknown]
  - Premature labour [Unknown]
